FAERS Safety Report 5167326-8 (Version None)
Quarter: 2006Q4

REPORT INFORMATION
  Report Type: 
  Country: None (occurrence: None)
  Receive Date: 20061129
  Receipt Date: 20061115
  Transmission Date: 20070319
  Serious: Yes (Life-Threatening, Hospitalization, Other)
  Sender: FDA-Public Use
  Company Number: 2006JP004402

PATIENT
  Age: 49 Year
  Sex: Female

DRUGS (10)
  1. PROGRAF [Suspect]
     Indication: HEART TRANSPLANT
     Dosage: 2 MG, BID; 1.5 MG, UID/QD; 1 MG, UID/QD; 0.5 MG, UID/QD
  2. MYCOPHENOLATE MOFETIL [Suspect]
     Indication: HEART TRANSPLANT
     Dosage: 1.5 MG, BID; 500 MG,BID
     Dates: start: 20020801
  3. CYCLOSPORINE [Concomitant]
  4. PREDNISONE TAB [Concomitant]
  5. TRIMETOPRIM + SULFAMETOXAZOL, TRIMETHOPRIM) [Concomitant]
  6. GANCICLOVIR (GANCICLOVIR) INJECTION [Concomitant]
  7. METHYLPREDNISOLONE [Concomitant]
  8. PREDNISONE TAB [Concomitant]
  9. ITRACONAZOLE [Concomitant]
  10. AMPHOTERICIN INJECTION [Concomitant]

REACTIONS (7)
  - BRONCHITIS FUNGAL [None]
  - CYTOMEGALOVIRUS GASTROINTESTINAL INFECTION [None]
  - DRUG INTERACTION [None]
  - DRUG LEVEL INCREASED [None]
  - KAPOSI'S SARCOMA [None]
  - OEDEMA PERIPHERAL [None]
  - RASH PAPULAR [None]
